FAERS Safety Report 4520203-5 (Version None)
Quarter: 2004Q4

REPORT INFORMATION
  Report Type: 
  Country: None (occurrence: None)
  Receive Date: 20041202
  Receipt Date: 20041202
  Transmission Date: 20050328
  Serious: Yes (Hospitalization)
  Sender: FDA-Public Use
  Company Number: None

PATIENT
  Age: 43 Year
  Sex: Female
  Weight: 68 kg

DRUGS (6)
  1. RITUXIMAB  375 MG/M2  GENENTECH [Suspect]
     Indication: GRAFT VERSUS HOST DISEASE
     Dosage: 375 MG/M2  ONCE/WEEK X 4 INTRAVENOUS
     Route: 042
     Dates: start: 20040720, end: 20040810
  2. CELLCEPT [Concomitant]
  3. SIROLIMUS [Concomitant]
  4. BACTRIM [Concomitant]
  5. PREDNISONE [Concomitant]
  6. VALGANCICLOVIR [Concomitant]

REACTIONS (1)
  - PNEUMONIA [None]
